FAERS Safety Report 24199084 (Version 1)
Quarter: 2024Q3

REPORT INFORMATION
  Report Type: Report from Study
  Country: US (occurrence: US)
  Receive Date: 20240812
  Receipt Date: 20240812
  Transmission Date: 20241017
  Serious: Yes (Other)
  Sender: ABBVIE
  Company Number: US-ABBVIE-5872870

PATIENT
  Sex: Male

DRUGS (1)
  1. SKYRIZI [Suspect]
     Active Substance: RISANKIZUMAB-RZAA
     Indication: Product used for unknown indication
     Route: 058
     Dates: start: 20240316

REACTIONS (5)
  - Eye haemorrhage [Unknown]
  - Arthralgia [Unknown]
  - Nocturia [Unknown]
  - Renal impairment [Unknown]
  - Eye injury [Unknown]

NARRATIVE: CASE EVENT DATE: 20240101
